FAERS Safety Report 16550860 (Version 1)
Quarter: 2019Q3

REPORT INFORMATION
  Report Type: Spontaneous
  Country: US (occurrence: US)
  Receive Date: 20190529
  Receipt Date: 20190529
  Transmission Date: 20191004
  Serious: No
  Sender: FDA-Public Use
  Company Number: None

PATIENT
  Age: 69 Year
  Sex: Female

DRUGS (1)
  1. COPAXONE [Suspect]
     Active Substance: GLATIRAMER ACETATE
     Indication: MULTIPLE SCLEROSIS
     Dosage: 40MG ONE 3 TIMES WEEKLY SC
     Route: 058
     Dates: start: 20171129

REACTIONS (2)
  - Myalgia [None]
  - Pain [None]

NARRATIVE: CASE EVENT DATE: 20190522
